FAERS Safety Report 11471951 (Version 1)
Quarter: 2015Q3

REPORT INFORMATION
  Report Type: Spontaneous
  Country: US (occurrence: US)
  Receive Date: 20150908
  Receipt Date: 20150908
  Transmission Date: 20151125
  Serious: Yes (Other)
  Sender: FDA-Public Use
  Company Number: US-PFIZER INC-2015294367

PATIENT
  Age: 70 Year
  Sex: Female

DRUGS (1)
  1. TOVIAZ [Suspect]
     Active Substance: FESOTERODINE FUMARATE
     Indication: BLADDER DISORDER
     Dosage: 8 MG, UNK
     Dates: start: 201507, end: 2015

REACTIONS (7)
  - Malaise [Not Recovered/Not Resolved]
  - Drug effect incomplete [Unknown]
  - Decreased appetite [Unknown]
  - Cough [Unknown]
  - Aspiration [Unknown]
  - Gastrointestinal disorder [Unknown]
  - Drug effect prolonged [Unknown]
